FAERS Safety Report 13365400 (Version 1)
Quarter: 2017Q1

REPORT INFORMATION
  Report Type: Spontaneous
  Country: US (occurrence: US)
  Receive Date: 20170323
  Receipt Date: 20170323
  Transmission Date: 20170429
  Serious: No
  Sender: FDA-Public Use
  Company Number: US-ROCHE-1478955

PATIENT
  Sex: Female

DRUGS (9)
  1. GRAPE SEED [Concomitant]
     Active Substance: HERBALS\VITIS VINIFERA SEED
  2. XOLAIR [Suspect]
     Active Substance: OMALIZUMAB
     Indication: PRODUCT USED FOR UNKNOWN INDICATION
     Route: 065
  3. SYMBICORT [Concomitant]
     Active Substance: BUDESONIDE\FORMOTEROL FUMARATE DIHYDRATE
  4. ALBUTEROL. [Concomitant]
     Active Substance: ALBUTEROL
  5. IBUPROFEN. [Concomitant]
     Active Substance: IBUPROFEN
  6. ESTRADIOL. [Concomitant]
     Active Substance: ESTRADIOL
     Route: 065
  7. OMEGA 3 [Concomitant]
     Active Substance: OMEGA-3 FATTY ACIDS
     Route: 065
  8. SINGULAIR [Concomitant]
     Active Substance: MONTELUKAST SODIUM
  9. KENALOG [Concomitant]
     Active Substance: TRIAMCINOLONE ACETONIDE
     Route: 065

REACTIONS (8)
  - Drug ineffective [Unknown]
  - Dyspnoea [Unknown]
  - Suffocation feeling [Unknown]
  - Sneezing [Unknown]
  - Miliaria [Unknown]
  - Rhinorrhoea [Unknown]
  - Influenza like illness [Unknown]
  - Pain [Unknown]
